FAERS Safety Report 11394542 (Version 1)
Quarter: 2015Q3

REPORT INFORMATION
  Report Type: Spontaneous
  Country: US (occurrence: None)
  Receive Date: 20150817
  Receipt Date: 20150817
  Transmission Date: 20151125
  Serious: No
  Sender: FDA-Public Use
  Company Number: None

PATIENT
  Age: 64 Year
  Sex: Female
  Weight: 73.03 kg

DRUGS (3)
  1. AMLODIPINE [Concomitant]
     Active Substance: AMLODIPINE BESYLATE
  2. CLOBETASOL PROPIONATE 0.05% [Suspect]
     Active Substance: CLOBETASOL PROPIONATE
     Indication: RASH
     Route: 061
     Dates: start: 20150506, end: 20150806
  3. CLOBETASOL PROPIONATE 0.05% [Suspect]
     Active Substance: CLOBETASOL PROPIONATE
     Indication: PHOTOSENSITIVITY REACTION
     Route: 061
     Dates: start: 20150506, end: 20150806

REACTIONS (4)
  - Application site pruritus [None]
  - Rash generalised [None]
  - Steroid withdrawal syndrome [None]
  - Application site pain [None]

NARRATIVE: CASE EVENT DATE: 20150506
